FAERS Safety Report 4363924-X (Version None)
Quarter: 2004Q2

REPORT INFORMATION
  Report Type: 
  Country: None (occurrence: None)
  Receive Date: 20040518
  Receipt Date: 20040325
  Transmission Date: 20050107
  Serious: No
  Sender: FDA-Public Use
  Company Number: PHEH2003US10094

PATIENT
  Age: 73 Year
  Sex: Male

DRUGS (9)
  1. GLEEVEC [Suspect]
     Indication: CHRONIC MYELOID LEUKAEMIA
     Dosage: 400 MG, QD, ORAL
     Route: 048
     Dates: start: 20031027
  2. GLEEVEC [Suspect]
     Indication: CHRONIC MYELOID LEUKAEMIA
     Dosage: 400 MG, QD,
     Dates: start: 20010501, end: 20031026
  3. TOPROL-XL [Concomitant]
  4. PREVACID [Concomitant]
  5. LOTREL [Suspect]
     Dates: start: 20030601
  6. LEVOTHYROID [Concomitant]
  7. CLARINEX /DEN/ (LORATADINE, PSEUDOEPHEDRINE SULFATE) [Concomitant]
  8. HYTRIN [Concomitant]
  9. XANAX [Concomitant]

REACTIONS (5)
  - ANXIETY [None]
  - ASTHENIA [None]
  - CHILLS [None]
  - DIZZINESS [None]
  - TINNITUS [None]
